FAERS Safety Report 10423623 (Version 3)
Quarter: 2015Q1

REPORT INFORMATION
  Report Type: Spontaneous
  Country: US (occurrence: None)
  Receive Date: 20140722
  Receipt Date: 20150120
  Transmission Date: 20150720
  Serious: No
  Sender: FDA-Public Use
  Company Number: AEGR000395

PATIENT
  Age: 65 Year
  Sex: Female
  Weight: 70.3 kg

DRUGS (18)
  1. LISINOPRIL (LISINOPRIL) [Concomitant]
     Active Substance: LISINOPRIL
  2. ASPIRIN (ACETYLSALICYLIC ACID) [Concomitant]
     Active Substance: ASPIRIN
  3. EFFIENT (PRASUGREL HYDROCHLORIDE) [Concomitant]
  4. AMLODIPINE [Concomitant]
     Active Substance: AMLODIPINE BESYLATE
  5. XANAX [Concomitant]
     Active Substance: ALPRAZOLAM
  6. NASACORT (TRIAMCINOLONE ACETONIDE) [Concomitant]
  7. CLONIDINE (CLONIDINE) [Concomitant]
     Active Substance: CLONIDINE
  8. METOPROLOL (METOPROLOL) [Concomitant]
     Active Substance: METOPROLOL
  9. METFORMIN [Concomitant]
     Active Substance: METFORMIN HYDROCHLORIDE
  10. VITAMIN D (ERGOCALCIFEROL) [Concomitant]
     Active Substance: ERGOCALCIFEROL
  11. SOMA [Concomitant]
     Active Substance: CARISOPRODOL
  12. DIGOXIN (DIGOXIN) [Concomitant]
     Active Substance: DIGOXIN
  13. ISOSORBIDE (ISOSORBIDE) [Concomitant]
     Active Substance: ISOSORBIDE
  14. PREVACID [Concomitant]
     Active Substance: LANSOPRAZOLE
  15. CRESTOR [Concomitant]
     Active Substance: ROSUVASTATIN CALCIUM
  16. JUXTAPID [Suspect]
     Active Substance: LOMITAPIDE MESYLATE
     Indication: TYPE IIA HYPERLIPIDAEMIA
     Route: 048
     Dates: start: 201402
  17. NORCO (HYDROCODONE BITARTRATE, PARACETAMOL) [Concomitant]
  18. IRON (FERROUS SULFATE) [Concomitant]

REACTIONS (12)
  - Nausea [None]
  - Presyncope [None]
  - Diarrhoea [None]
  - Pain [None]
  - Infrequent bowel movements [None]
  - Decreased appetite [None]
  - Pain in extremity [None]
  - Weight decreased [None]
  - Abdominal discomfort [None]
  - Muscle spasms [None]
  - Vomiting [None]
  - Chest discomfort [None]

NARRATIVE: CASE EVENT DATE: 201404
